FAERS Safety Report 24669030 (Version 1)
Quarter: 2024Q4

REPORT INFORMATION
  Report Type: Report from Study
  Country: PL (occurrence: None)
  Receive Date: 20241127
  Receipt Date: 20241127
  Transmission Date: 20250114
  Serious: Yes (Other)
  Sender: UNICHEM
  Company Number: PL-Unichem Pharmaceuticals (USA) Inc-UCM202411-001576

PATIENT
  Age: 36 Year
  Sex: Female

DRUGS (6)
  1. QUETIAPINE [Suspect]
     Active Substance: QUETIAPINE
     Indication: Product used for unknown indication
  2. OXYCODONE [Concomitant]
     Active Substance: OXYCODONE
     Indication: Product used for unknown indication
     Dosage: UNKNOWN
  3. DROTAVERINE [Concomitant]
     Active Substance: DROTAVERINE
     Indication: Product used for unknown indication
     Dosage: UNKNOWN
  4. PANCREATIN [Concomitant]
     Active Substance: PANCRELIPASE
     Indication: Product used for unknown indication
     Dosage: UNKNOWN
  5. TRIMEBUTINE [Concomitant]
     Active Substance: TRIMEBUTINE
     Indication: Product used for unknown indication
     Dosage: UNKNOWN
  6. GABAPENTIN [Concomitant]
     Active Substance: GABAPENTIN
     Indication: Product used for unknown indication
     Dosage: UNKNOWN

REACTIONS (2)
  - Acute kidney injury [Unknown]
  - Drug interaction [Unknown]
